FAERS Safety Report 12681293 (Version 3)
Quarter: 2020Q2

REPORT INFORMATION
  Report Type: Spontaneous
  Country: US (occurrence: US)
  Receive Date: 20160824
  Receipt Date: 20200617
  Transmission Date: 20200713
  Serious: Yes (Death, Other)
  Sender: FDA-Public Use
  Company Number: US-009507513-1608USA011993

PATIENT
  Sex: Male
  Weight: 87.08 kg

DRUGS (2)
  1. GLIMEPIRIDE. [Concomitant]
     Active Substance: GLIMEPIRIDE
     Dosage: 4 MILLIGRAM, BID
     Dates: start: 20090316
  2. JANUVIA [Suspect]
     Active Substance: SITAGLIPTIN PHOSPHATE
     Indication: TYPE 2 DIABETES MELLITUS
     Dosage: 100 MILLIGRAM, TAKE ONE TABLET EVERY DAY
     Route: 048
     Dates: start: 20090316, end: 201205

REACTIONS (14)
  - Pancreatic carcinoma [Fatal]
  - Abdominal pain upper [Unknown]
  - Hyperkalaemia [Unknown]
  - Frequent bowel movements [Unknown]
  - Faeces discoloured [Unknown]
  - Deep vein thrombosis [Unknown]
  - Metastases to lymph nodes [Unknown]
  - Diverticulitis [Recovering/Resolving]
  - Rash pruritic [Recovering/Resolving]
  - Chronic kidney disease [Unknown]
  - Lymphadenopathy [Unknown]
  - Diabetes mellitus inadequate control [Unknown]
  - Abnormal faeces [Unknown]
  - Pollakiuria [Unknown]

NARRATIVE: CASE EVENT DATE: 2011
